FAERS Safety Report 8155418-0 (Version None)
Quarter: 2012Q1

REPORT INFORMATION
  Report Type: 
  Country: None (occurrence: None)
  Receive Date: 20120203
  Receipt Date: 20120123
  Transmission Date: 20120608
  Serious: Yes (Life-Threatening, Hospitalization)
  Sender: FDA-Public Use
  Company Number: 2012MA001185

PATIENT
  Age: 34 Year
  Sex: Female
  Weight: 65 kg

DRUGS (1)
  1. VENLAFAXINE HCL [Suspect]

REACTIONS (13)
  - SUBENDOCARDIAL ISCHAEMIA [None]
  - HYPOTENSION [None]
  - RENAL FAILURE ACUTE [None]
  - PNEUMONIA [None]
  - CARDIAC FAILURE ACUTE [None]
  - TOXICITY TO VARIOUS AGENTS [None]
  - CONTINUOUS HAEMODIAFILTRATION [None]
  - UNRESPONSIVE TO STIMULI [None]
  - COMA [None]
  - CONVULSION [None]
  - MULTIPLE DRUG OVERDOSE INTENTIONAL [None]
  - SEROTONIN SYNDROME [None]
  - RHABDOMYOLYSIS [None]
